FAERS Safety Report 5217175-7 (Version None)
Quarter: 2007Q1

REPORT INFORMATION
  Report Type: 
  Country: None (occurrence: None)
  Receive Date: 20070123
  Receipt Date: 20070123
  Transmission Date: 20070707
  Serious: Yes (Other)
  Sender: FDA-Public Use
  Company Number: None

PATIENT
  Sex: Female
  Weight: 73.9363 kg

DRUGS (1)
  1. SEROQUEL [Suspect]
     Indication: PARANOIA
     Dosage: 1 TABLET 1 BEFORE BEDTIME PO
     Route: 048
     Dates: start: 20030701, end: 20070118

REACTIONS (12)
  - DISCOMFORT [None]
  - EPISTAXIS [None]
  - FEELING ABNORMAL [None]
  - HAEMOPTYSIS [None]
  - HEPATIC PAIN [None]
  - HYPOGEUSIA [None]
  - LUNG DISORDER [None]
  - NASAL CONGESTION [None]
  - PAIN [None]
  - PAIN IN EXTREMITY [None]
  - RENAL PAIN [None]
  - SALIVARY HYPERSECRETION [None]
